FAERS Safety Report 11039389 (Version 2)
Quarter: 2015Q2

REPORT INFORMATION
  Report Type: Spontaneous
  Country: DK (occurrence: TR)
  Receive Date: 20150416
  Receipt Date: 20150428
  Transmission Date: 20150821
  Serious: Yes (Hospitalization, Other)
  Sender: FDA-Public Use
  Company Number: TR-FRI-1000075897

PATIENT
  Age: 84 Year
  Sex: Male

DRUGS (2)
  1. DONEPEZIL [Concomitant]
     Active Substance: DONEPEZIL
     Indication: DEMENTIA ALZHEIMER^S TYPE
     Dosage: 10 MG
  2. MEMANTINE [Suspect]
     Active Substance: MEMANTINE
     Indication: DEMENTIA ALZHEIMER^S TYPE
     Dosage: 30 MG
     Route: 048

REACTIONS (5)
  - Somnolence [Recovered/Resolved]
  - Delirium [Recovered/Resolved]
  - Hallucination, visual [Recovered/Resolved]
  - Overdose [Recovered/Resolved]
  - Inappropriate antidiuretic hormone secretion [Recovered/Resolved]
